FAERS Safety Report 19929099 (Version 2)
Quarter: 2021Q4

REPORT INFORMATION
  Report Type: Report from Study
  Country: US (occurrence: US)
  Receive Date: 20211007
  Receipt Date: 20211027
  Transmission Date: 20220303
  Serious: Yes (Hospitalization, Other)
  Sender: FDA-Public Use
  Company Number: US-GILEAD-2021-0550955

PATIENT
  Age: 35 Year
  Sex: Female

DRUGS (6)
  1. AZTREONAM LYSINE [Suspect]
     Active Substance: AZTREONAM LYSINE
     Indication: Cystic fibrosis
     Dosage: 1 VIAL, TID FOR 28 DAYS ON AND 28 DAYS OFF
     Route: 055
     Dates: start: 20190619
  2. AZTREONAM LYSINE [Suspect]
     Active Substance: AZTREONAM LYSINE
     Indication: Cystic fibrosis lung
  3. CREON [Concomitant]
     Active Substance: PANCRELIPASE AMYLASE\PANCRELIPASE LIPASE\PANCRELIPASE PROTEASE
  4. TRIKAFTA [Concomitant]
     Active Substance: ELEXACAFTOR\IVACAFTOR\TEZACAFTOR
  5. SUCRALFATE [Concomitant]
     Active Substance: SUCRALFATE
  6. FAMOTIDINE [Concomitant]
     Active Substance: FAMOTIDINE

REACTIONS (1)
  - Cholelithiasis [Unknown]

NARRATIVE: CASE EVENT DATE: 20210916
